FAERS Safety Report 21231472 (Version 6)
Quarter: 2023Q4

REPORT INFORMATION
  Report Type: Other
  Country: US (occurrence: None)
  Receive Date: 20220819
  Receipt Date: 20231003
  Transmission Date: 20240109
  Serious: Yes (Hospitalization)
  Sender: FDA-Public Use
  Company Number: US-ROCHE-3161671

PATIENT
  Age: 81 Year
  Sex: Male

DRUGS (6)
  1. ESBRIET [Suspect]
     Active Substance: PIRFENIDONE
     Indication: Interstitial lung disease
     Route: 048
     Dates: start: 202206
  2. ESBRIET [Suspect]
     Active Substance: PIRFENIDONE
     Indication: Prostate cancer
     Route: 048
     Dates: start: 20220614
  3. ESBRIET [Suspect]
     Active Substance: PIRFENIDONE
     Route: 048
     Dates: start: 20220622
  4. ESBRIET [Suspect]
     Active Substance: PIRFENIDONE
     Indication: Product used for unknown indication
     Route: 048
  5. ESBRIET [Suspect]
     Active Substance: PIRFENIDONE
     Indication: Pneumonia
     Dosage: TAKE 3 CAPSULES BY MOUTH 3 TIMES A DAY
     Route: 048
  6. OFEV [Concomitant]
     Active Substance: NINTEDANIB

REACTIONS (10)
  - Nausea [Unknown]
  - Vomiting [Unknown]
  - Diarrhoea [Unknown]
  - Abdominal pain upper [Unknown]
  - Off label use [Unknown]
  - Gastritis [Unknown]
  - Arthropathy [Unknown]
  - Headache [Unknown]
  - Constipation [Unknown]
  - Abdominal discomfort [Unknown]
